FAERS Safety Report 21334098 (Version 1)
Quarter: 2022Q3

REPORT INFORMATION
  Report Type: Spontaneous
  Country: JP (occurrence: JP)
  Receive Date: 20220914
  Receipt Date: 20220914
  Transmission Date: 20221027
  Serious: Yes (Other)
  Sender: FDA-Public Use
  Company Number: JP-PFIZER INC-202201147608

PATIENT

DRUGS (1)
  1. LORAZEPAM [Suspect]
     Active Substance: LORAZEPAM
     Dosage: UNK
     Route: 048

REACTIONS (4)
  - Parkinson^s disease [Unknown]
  - Dizziness [Unknown]
  - Gait disturbance [Unknown]
  - Ataxia [Unknown]
